FAERS Safety Report 13916268 (Version 2)
Quarter: 2017Q3

REPORT INFORMATION
  Report Type: Report from Study
  Country: ZA (occurrence: ZA)
  Receive Date: 20170829
  Receipt Date: 20170911
  Transmission Date: 20171127
  Serious: Yes (Hospitalization, Disabling)
  Sender: FDA-Public Use
  Company Number: ZA-ROCHE-1983571

PATIENT
  Sex: Female

DRUGS (1)
  1. ACTEMRA [Suspect]
     Active Substance: TOCILIZUMAB
     Indication: RHEUMATOID ARTHRITIS
     Route: 042
     Dates: start: 20170509

REACTIONS (3)
  - Haemorrhage [Unknown]
  - Surgical failure [Unknown]
  - Paralysis [Unknown]
